FAERS Safety Report 17216440 (Version 1)
Quarter: 2019Q4

REPORT INFORMATION
  Report Type: Report from Study
  Country: US (occurrence: US)
  Receive Date: 20191230
  Receipt Date: 20191230
  Transmission Date: 20200122
  Serious: Yes (Other)
  Sender: FDA-Public Use
  Company Number: US-GILEAD-2019-0444840

PATIENT
  Age: 35 Year
  Sex: Male

DRUGS (10)
  1. GABAPENTIN. [Concomitant]
     Active Substance: GABAPENTIN
  2. ALENDRONATE [Concomitant]
     Active Substance: ALENDRONATE SODIUM
  3. ALBUTEROL [SALBUTAMOL] [Concomitant]
     Active Substance: ALBUTEROL
  4. OYSCO [Concomitant]
  5. VITAMIN D2 [Concomitant]
     Active Substance: ERGOCALCIFEROL
  6. AZTREONAM LYSINE [Suspect]
     Active Substance: AZTREONAM LYSINE
     Indication: CYSTIC FIBROSIS
     Dosage: 1 DOSAGE FORM, TID, FOR 28 DAYS
     Route: 055
     Dates: start: 20140508
  7. PULMOZYME [Concomitant]
     Active Substance: DORNASE ALFA
  8. MAGNESIUM [Concomitant]
     Active Substance: MAGNESIUM
  9. AZITHROMYCIN ANHYDROUS. [Concomitant]
     Active Substance: AZITHROMYCIN ANHYDROUS
  10. SYMDEKO [Concomitant]
     Active Substance: IVACAFTOR\TEZACAFTOR

REACTIONS (1)
  - Lung transplant [Unknown]

NARRATIVE: CASE EVENT DATE: 20191213
